FAERS Safety Report 10232482 (Version 2)
Quarter: 2014Q3

REPORT INFORMATION
  Report Type: Spontaneous
  Country: US (occurrence: US)
  Receive Date: 20140612
  Receipt Date: 20140717
  Transmission Date: 20150326
  Serious: Yes (Other)
  Sender: FDA-Public Use
  Company Number: US-ROCHE-1414634

PATIENT
  Sex: Female

DRUGS (5)
  1. PEGASYS [Suspect]
     Active Substance: PEGINTERFERON ALFA-2A
     Indication: CHRONIC HEPATITIS C
     Route: 058
     Dates: start: 20140427
  2. RIBASPHERE [Suspect]
     Active Substance: RIBAVIRIN
     Dosage: DIVIDED DOASES IN AM AND PM
     Route: 048
  3. RIBASPHERE [Suspect]
     Active Substance: RIBAVIRIN
     Indication: CHRONIC HEPATITIS C
     Dosage: DIVIDED DOASES IN AM AND PM
     Route: 048
     Dates: start: 20140427
  4. SOVALDI [Suspect]
     Active Substance: SOFOSBUVIR
     Indication: CHRONIC HEPATITIS C
     Route: 065
     Dates: start: 20140427
  5. LEXAPRO [Concomitant]
     Active Substance: ESCITALOPRAM OXALATE
     Indication: DEPRESSION
     Route: 065

REACTIONS (11)
  - Anxiety [Unknown]
  - Anaemia [Unknown]
  - Urinary tract infection [Unknown]
  - Weight decreased [Unknown]
  - Violence-related symptom [Unknown]
  - Logorrhoea [Unknown]
  - Irritability [Unknown]
  - Energy increased [Unknown]
  - Feeling abnormal [Unknown]
  - Depression [Unknown]
  - Fatigue [Unknown]
